FAERS Safety Report 9219572 (Version 3)
Quarter: 2013Q2

REPORT INFORMATION
  Report Type: Report from Study
  Country: JP (occurrence: JP)
  Receive Date: 20130409
  Receipt Date: 20130508
  Transmission Date: 20140414
  Serious: Yes (Hospitalization)
  Sender: FDA-Public Use
  Company Number: JP-SANOFI-AVENTIS-2013SA035764

PATIENT
  Age: 72 Year
  Sex: Male
  Weight: 56 kg

DRUGS (11)
  1. ELPLAT [Suspect]
     Indication: GASTRIC CANCER
     Dosage: FORM: INFUSION SOLUTION INJECTION
     Route: 041
     Dates: start: 20121031
  2. ELPLAT [Suspect]
     Indication: GASTRIC CANCER
     Route: 041
     Dates: start: 20130205
  3. CAPECITABINE [Suspect]
     Indication: GASTRIC CANCER
     Route: 048
     Dates: start: 20121031
  4. CAPECITABINE [Suspect]
     Indication: GASTRIC CANCER
     Route: 048
     Dates: start: 20130205, end: 20130312
  5. VALSARTAN [Concomitant]
     Dates: start: 20100924
  6. PLAVIX [Concomitant]
     Dates: start: 20101010
  7. HIRUDOID [Concomitant]
     Dosage: CREAM
     Dates: start: 20121031
  8. HIRUDOID [Concomitant]
     Dosage: LOTION (EXCEPT LOTION FOR EYE)
     Dates: start: 20121121, end: 20130409
  9. PERAPRIN [Concomitant]
     Dates: start: 20130319, end: 20130325
  10. PROMAC /JPN/ [Concomitant]
     Dates: start: 20130319, end: 20130325
  11. MEDEPOLIN [Concomitant]
     Route: 065
     Dates: start: 20130324

REACTIONS (1)
  - Memory impairment [Recovering/Resolving]
